FAERS Safety Report 24165699 (Version 1)
Quarter: 2024Q3

REPORT INFORMATION
  Report Type: Spontaneous
  Country: US (occurrence: US)
  Receive Date: 20240802
  Receipt Date: 20240802
  Transmission Date: 20241017
  Serious: Yes (Other)
  Sender: ACCORD
  Company Number: US-Accord-419148

PATIENT
  Age: 52 Year
  Sex: Female
  Weight: 64.86 kg

DRUGS (5)
  1. DOCETAXEL [Suspect]
     Active Substance: DOCETAXEL\DOCETAXEL ANHYDROUS
     Indication: Breast cancer
     Dosage: NUMBER OF CYCLES: 04, EVERY 2 WEEKS
     Dates: start: 20140613, end: 20140814
  2. NEOSAR [Suspect]
     Active Substance: CYCLOPHOSPHAMIDE
     Indication: Breast cancer
     Dosage: NUMBER OF CYCLES: 04, EVERY 2 WEEKS
     Dates: start: 20140613, end: 20140814
  3. HERCEPTIN [Concomitant]
     Active Substance: TRASTUZUMAB
  4. AROMASIN [Concomitant]
     Active Substance: EXEMESTANE
     Dates: start: 201411, end: 201411
  5. ARIMIDEX [Concomitant]
     Active Substance: ANASTROZOLE
     Dates: start: 20141222

REACTIONS (1)
  - Alopecia [Recovered/Resolved]

NARRATIVE: CASE EVENT DATE: 20150201
